FAERS Safety Report 25076090 (Version 1)
Quarter: 2025Q1

REPORT INFORMATION
  Report Type: Spontaneous
  Country: CN (occurrence: CN)
  Receive Date: 20250313
  Receipt Date: 20250313
  Transmission Date: 20250409
  Serious: Yes (Other)
  Sender: SANDOZ
  Company Number: CN-002147023-NVSC2025CN040169

PATIENT
  Sex: Female

DRUGS (4)
  1. TOBREX [Suspect]
     Active Substance: TOBRAMYCIN
     Route: 065
  2. TOBREX [Suspect]
     Active Substance: TOBRAMYCIN
     Indication: Conjunctivitis
     Route: 065
  3. TOBREX [Suspect]
     Active Substance: TOBRAMYCIN
     Route: 065
  4. DICLOFENAC SODIUM [Concomitant]
     Active Substance: DICLOFENAC SODIUM
     Indication: Product used for unknown indication
     Route: 065

REACTIONS (8)
  - Eye haemorrhage [Recovering/Resolving]
  - Asthenopia [Recovering/Resolving]
  - Ocular discomfort [Unknown]
  - Ocular hyperaemia [Recovering/Resolving]
  - Drug ineffective [Unknown]
  - Product label counterfeit [Unknown]
  - Product label issue [Unknown]
  - Counterfeit product administered [Unknown]
